FAERS Safety Report 5729850-6 (Version None)
Quarter: 2008Q2

REPORT INFORMATION
  Report Type: 
  Country: None (occurrence: None)
  Receive Date: 20080502
  Receipt Date: 20080425
  Transmission Date: 20081010
  Serious: Yes (Other)
  Sender: FDA-Public Use
  Company Number: 2008010740

PATIENT
  Sex: Male

DRUGS (1)
  1. PURELL WITH ALOE (ETHYL ALCOHOL) [Suspect]
     Indication: ACCIDENTAL EXPOSURE
     Dosage: A DROP, ONCE, OPHTHALMIC
     Route: 047

REACTIONS (5)
  - ACCIDENTAL EXPOSURE [None]
  - PAIN [None]
  - RESTLESSNESS [None]
  - SLEEP DISORDER [None]
  - SWELLING FACE [None]
